FAERS Safety Report 14978270 (Version 1)
Quarter: 2018Q2

REPORT INFORMATION
  Report Type: Spontaneous
  Country: RU (occurrence: RU)
  Receive Date: 20180606
  Receipt Date: 20180606
  Transmission Date: 20180711
  Serious: Yes (Life-Threatening)
  Sender: FDA-Public Use
  Company Number: RU-CONCORDIA PHARMACEUTICALS INC.-E2B_00012231

PATIENT
  Age: 13 Year
  Sex: Male

DRUGS (7)
  1. ZONISAMIDE. [Suspect]
     Active Substance: ZONISAMIDE
     Indication: EPILEPSY
     Dosage: UNKNOWN
     Dates: start: 2015, end: 2015
  2. BENZONAL [Concomitant]
     Indication: EPILEPSY
     Route: 048
     Dates: start: 2015, end: 2016
  3. TOPIRAMATE. [Concomitant]
     Active Substance: TOPIRAMATE
     Indication: EPILEPSY
     Route: 048
     Dates: start: 2015
  4. LEVETIRACETAM. [Concomitant]
     Active Substance: LEVETIRACETAM
     Indication: EPILEPSY
     Dosage: UNKNOWN
     Dates: start: 2015, end: 2015
  5. OSPOLOT [Concomitant]
     Active Substance: SULTHIAME
     Indication: EPILEPSY
     Dosage: UNKNOWN
     Dates: start: 2015, end: 2015
  6. GABAPENTIN. [Concomitant]
     Active Substance: GABAPENTIN
     Indication: EPILEPSY
     Dosage: UNKNOWN
     Dates: start: 2015, end: 2015
  7. LAMOTRIGINE. [Concomitant]
     Active Substance: LAMOTRIGINE
     Indication: EPILEPSY
     Dosage: UNKNOWN
     Dates: start: 2015, end: 2015

REACTIONS (1)
  - Sopor [Unknown]

NARRATIVE: CASE EVENT DATE: 2015
